FAERS Safety Report 18394928 (Version 1)
Quarter: 2020Q4

REPORT INFORMATION
  Report Type: Report from Study
  Country: US (occurrence: US)
  Receive Date: 20201016
  Receipt Date: 20201016
  Transmission Date: 20210114
  Serious: Yes (Hospitalization, Other)
  Sender: FDA-Public Use
  Company Number: US-GILEAD-2020-0498863

PATIENT
  Age: 63 Year
  Sex: Female

DRUGS (1)
  1. IDELALISIB [Suspect]
     Active Substance: IDELALISIB
     Indication: CHRONIC LYMPHOCYTIC LEUKAEMIA (IN REMISSION)
     Dosage: 100 MG, BID
     Route: 048
     Dates: start: 20150213, end: 20200906

REACTIONS (10)
  - Clostridium difficile infection [Unknown]
  - Asthenia [Unknown]
  - Weight increased [Unknown]
  - Nausea [Unknown]
  - Splenomegaly [Unknown]
  - Lymphadenopathy [Unknown]
  - Colitis [Unknown]
  - Weight decreased [Unknown]
  - Colitis [Unknown]
  - Hepatomegaly [Unknown]

NARRATIVE: CASE EVENT DATE: 202004
